FAERS Safety Report 7991852-7 (Version None)
Quarter: 2011Q4

REPORT INFORMATION
  Report Type: 
  Country: None (occurrence: None)
  Receive Date: 20111219
  Receipt Date: 20111214
  Transmission Date: 20120403
  Serious: No
  Sender: FDA-Public Use
  Company Number: US-PFIZER INC-2011305000

PATIENT
  Sex: Male

DRUGS (1)
  1. ZITHROMAX [Suspect]
     Dosage: UNK
     Dates: end: 20110101

REACTIONS (1)
  - TINNITUS [None]
